FAERS Safety Report 5453698-3 (Version None)
Quarter: 2007Q3

REPORT INFORMATION
  Report Type: 
  Country: None (occurrence: None)
  Receive Date: 20070917
  Receipt Date: 20070913
  Transmission Date: 20080115
  Serious: Yes (Hospitalization)
  Sender: FDA-Public Use
  Company Number: US-AMGEN-US240529

PATIENT
  Sex: Female

DRUGS (4)
  1. NEULASTA [Suspect]
     Indication: CHEMOTHERAPY
     Route: 058
     Dates: start: 20070101
  2. TAXOL [Concomitant]
     Route: 065
  3. DARVOCET [Concomitant]
     Route: 065
  4. VALIUM [Concomitant]
     Route: 065

REACTIONS (2)
  - BONE PAIN [None]
  - PAINFUL RESPIRATION [None]
